FAERS Safety Report 11982809 (Version 1)
Quarter: 2016Q1

REPORT INFORMATION
  Report Type: Spontaneous
  Country: CA (occurrence: CA)
  Receive Date: 20160201
  Receipt Date: 20160201
  Transmission Date: 20160526
  Serious: Yes (Other)
  Sender: FDA-Public Use
  Company Number: CA-JNJFOC-20160119535

PATIENT

DRUGS (3)
  1. REVLIMID [Concomitant]
     Active Substance: LENALIDOMIDE
     Indication: PLASMA CELL MYELOMA
     Route: 065
  2. DECADRON [Concomitant]
     Active Substance: DEXAMETHASONE
     Indication: PLASMA CELL MYELOMA
     Route: 065
  3. DARATUMUMAB [Suspect]
     Active Substance: DARATUMUMAB
     Indication: PLASMA CELL MYELOMA
     Route: 042

REACTIONS (17)
  - Protein total increased [Recovered/Resolved]
  - Blood count abnormal [Unknown]
  - Atrial fibrillation [Unknown]
  - Pneumonia [Unknown]
  - Dyspnoea [Unknown]
  - Decreased appetite [Unknown]
  - Pyrexia [Unknown]
  - Vomiting [Unknown]
  - Pain [Unknown]
  - Eye disorder [Unknown]
  - Fatigue [Unknown]
  - Infusion related reaction [Recovered/Resolved]
  - Nausea [Unknown]
  - Headache [Unknown]
  - Arthropathy [Unknown]
  - Constipation [Unknown]
  - Diarrhoea [Unknown]
